FAERS Safety Report 24545310 (Version 3)
Quarter: 2024Q4

REPORT INFORMATION
  Report Type: Spontaneous
  Country: IN (occurrence: IN)
  Receive Date: 20241024
  Receipt Date: 20241217
  Transmission Date: 20250114
  Serious: Yes (Other)
  Sender: PFIZER
  Company Number: IN-PFIZER INC-PV202400136418

PATIENT
  Age: 54 Year
  Sex: Female
  Weight: 35 kg

DRUGS (1)
  1. CRIZOTINIB [Suspect]
     Active Substance: CRIZOTINIB
     Indication: Lung adenocarcinoma
     Dosage: 250 MG, 2X/DAY
     Route: 048
     Dates: start: 202406

REACTIONS (3)
  - Haemoglobin decreased [Unknown]
  - White blood cell count decreased [Unknown]
  - Peripheral swelling [Unknown]
